FAERS Safety Report 7760711-7 (Version None)
Quarter: 2011Q3

REPORT INFORMATION
  Report Type: 
  Country: None (occurrence: None)
  Receive Date: 20110919
  Receipt Date: 20110915
  Transmission Date: 20111222
  Serious: Yes (Other)
  Sender: FDA-Public Use
  Company Number: BR-ABBOTT-09P-020-0602930-00

PATIENT
  Sex: Female
  Weight: 80 kg

DRUGS (37)
  1. ENALAPRIL MALEATE [Concomitant]
     Indication: HYPERTENSION
     Route: 048
     Dates: start: 19860101
  2. AMLODIPINE [Concomitant]
     Indication: HYPERTENSION
     Route: 048
  3. ALUMINUM HYDROXIDE GEL [Concomitant]
     Indication: GASTRIC DISORDER
     Route: 048
     Dates: start: 20090302
  4. CHLOROQUINE, DICLOFENAC [Concomitant]
     Indication: RHEUMATOID ARTHRITIS
     Route: 048
  5. PREDNISONE [Concomitant]
     Indication: PAIN
     Route: 048
     Dates: start: 19840101
  6. ALBUTEROL [Concomitant]
     Indication: BRONCHITIS
     Route: 048
  7. ENALAPRIL MALEATE [Concomitant]
     Indication: HYPERTENSION
     Route: 048
  8. ISORDIL [Concomitant]
     Indication: DYSPNOEA
  9. DIGOXIN [Concomitant]
     Indication: CHEST PAIN
     Route: 048
  10. KETOCONAZOLE [Concomitant]
     Indication: RASH
     Route: 061
  11. LAVIQUI [Concomitant]
     Indication: SWELLING
     Route: 048
  12. FURDIDOXINA [Concomitant]
     Indication: MENTAL DISORDER
     Route: 048
  13. PROMETHAZINE [Concomitant]
     Indication: SLEEP DISORDER THERAPY
     Route: 048
  14. HUMIRA [Suspect]
     Indication: RHEUMATOID ARTHRITIS
     Route: 058
     Dates: start: 20090227, end: 20090825
  15. METHOTREXATE [Concomitant]
     Indication: OSTEOARTHRITIS
     Route: 048
  16. VOLTAREN [Concomitant]
     Indication: PAIN
     Route: 048
     Dates: start: 20050726
  17. FLUCONAZOLE [Concomitant]
     Indication: SKIN FISSURES
  18. SPIRONOLACTONE [Concomitant]
     Indication: BLOOD PRESSURE
     Dates: start: 19840101
  19. LASIX [Concomitant]
     Indication: HYPERTENSION
     Route: 048
  20. LAVIQUI [Concomitant]
     Indication: DYSURIA
  21. LOSARTAN POTASSIUM [Concomitant]
     Indication: BLOOD PRESSURE INCREASED
     Route: 048
  22. LAPTEC [Concomitant]
     Indication: CARDIAC DISORDER
     Route: 048
  23. FLUOXETINE HCL [Concomitant]
     Indication: PROPHYLAXIS
  24. EPISOL [Concomitant]
     Indication: HYPERTENSION
     Route: 048
  25. FOLIC ACID [Concomitant]
     Indication: BONE DISORDER
     Route: 048
  26. SUSTRATE [Concomitant]
     Indication: HYPERTENSION
     Route: 048
     Dates: start: 20090203
  27. OMEPRAZOLE [Concomitant]
     Indication: GASTRIC DISORDER
     Route: 048
  28. RISPERIDONE [Concomitant]
     Indication: HYPERTENSION
     Route: 048
  29. HUMIRA [Suspect]
     Route: 058
     Dates: start: 20091014
  30. DIPYRONE TAB [Concomitant]
     Indication: PAIN
     Route: 048
     Dates: start: 20050726
  31. ESPIROLONA [Concomitant]
     Indication: HYPERTENSION
     Route: 048
  32. VOLTAREN [Concomitant]
     Dosage: IF PRESENTS PAIN
     Route: 048
     Dates: start: 19890101
  33. CHLOROQUINE [Concomitant]
     Indication: OSTEOARTHRITIS
     Route: 048
  34. PROMETHAZINE [Concomitant]
     Indication: SEDATIVE THERAPY
  35. FLUOXETINE HCL [Concomitant]
     Indication: FEELING OF RELAXATION
  36. ISORDIL [Concomitant]
     Indication: CHEST PAIN
     Route: 048
  37. FENOTEROL [Concomitant]
     Indication: BRONCHITIS

REACTIONS (20)
  - JOINT INJURY [None]
  - DYSPNOEA [None]
  - JOINT SWELLING [None]
  - MUSCULAR WEAKNESS [None]
  - ATROPHY [None]
  - VISUAL IMPAIRMENT [None]
  - JOINT DISLOCATION [None]
  - INCREASED UPPER AIRWAY SECRETION [None]
  - AGITATION [None]
  - NASAL CONGESTION [None]
  - FORMICATION [None]
  - PAIN [None]
  - INJECTION SITE DISCOLOURATION [None]
  - HYPOAESTHESIA [None]
  - ANAEMIA [None]
  - INJECTION SITE ABSCESS [None]
  - FALL [None]
  - INJECTION SITE PAIN [None]
  - ARTHRALGIA [None]
  - SKIN LESION [None]
